FAERS Safety Report 23116796 (Version 1)
Quarter: 2023Q4

REPORT INFORMATION
  Report Type: Spontaneous
  Country: US (occurrence: US)
  Receive Date: 20231027
  Receipt Date: 20231027
  Transmission Date: 20240110
  Serious: Yes (Hospitalization, Other)
  Sender: FDA-Public Use
  Company Number: US-JNJFOC-20231048981

PATIENT
  Age: 69 Year
  Sex: Male

DRUGS (2)
  1. ZYTIGA [Suspect]
     Active Substance: ABIRATERONE ACETATE
     Indication: Prostate cancer
     Route: 048
  2. PREDNISONE [Suspect]
     Active Substance: PREDNISONE
     Indication: Prostate cancer
     Route: 065

REACTIONS (5)
  - Hypokalaemia [Unknown]
  - Renal disorder [Unknown]
  - Metabolic alkalosis [Unknown]
  - Hypocalcaemia [Unknown]
  - Hypertension [Unknown]
